FAERS Safety Report 26208506 (Version 1)
Quarter: 2025Q4

REPORT INFORMATION
  Report Type: Report from Study
  Country: EU (occurrence: EU)
  Receive Date: 20251229
  Receipt Date: 20251229
  Transmission Date: 20260118
  Serious: Yes (Hospitalization, Other)
  Sender: SAMSUNG BIOEPIS
  Company Number: EU-SAMSUNG BIOEPIS-SB-2025-42656

PATIENT
  Age: 30 Year
  Sex: Female

DRUGS (1)
  1. ETANERCEPT [Suspect]
     Active Substance: ETANERCEPT
     Indication: Ankylosing spondylitis
     Dates: start: 20251003

REACTIONS (4)
  - Pelvic pain [Recovered/Resolved]
  - Abortion spontaneous [Unknown]
  - Ectopic pregnancy [Unknown]
  - Maternal exposure during pregnancy [Unknown]

NARRATIVE: CASE EVENT DATE: 20251105
